FAERS Safety Report 7178752-X (Version None)
Quarter: 2010Q4

REPORT INFORMATION
  Report Type: 
  Country: None (occurrence: None)
  Receive Date: 20101221
  Receipt Date: 20101208
  Transmission Date: 20110411
  Serious: Yes (Hospitalization, Other)
  Sender: FDA-Public Use
  Company Number: US-ELI_LILLY_AND_COMPANY-US201004004846

PATIENT
  Sex: Female

DRUGS (14)
  1. FORTEO [Suspect]
     Indication: OSTEOPOROSIS
     Dosage: 20 UG, DAILY (1/D)
     Route: 065
     Dates: start: 20090701, end: 20090801
  2. FORTEO [Suspect]
     Dosage: 20 UG, DAILY (1/D)
     Dates: start: 20090901
  3. DIGOXIN [Concomitant]
     Indication: CARDIAC DISORDER
     Dosage: UNK, UNKNOWN
     Route: 065
  4. ATENOLOL [Concomitant]
     Indication: CARDIAC DISORDER
     Dosage: UNK, UNKNOWN
     Route: 065
  5. CALCIUM [Concomitant]
  6. ALPRAZOLAM [Concomitant]
  7. XALATAN [Concomitant]
  8. TYLENOL (CAPLET) [Concomitant]
  9. COUMADIN [Concomitant]
  10. CALCIUM W/VITAMIN D NOS [Concomitant]
  11. ALLOPURINOL [Concomitant]
     Dosage: UNK, UNKNOWN
     Route: 065
  12. MAGNESIUM OXIDE [Concomitant]
     Dosage: UNK, UNKNOWN
     Route: 065
  13. IRON [Concomitant]
     Dosage: UNK, UNKNOWN
     Route: 065
  14. OMEPRAZOLE [Concomitant]
     Dosage: UNK, UNKNOWN
     Route: 065

REACTIONS (6)
  - ANAEMIA [None]
  - AORTIC ANEURYSM [None]
  - ATRIAL FIBRILLATION [None]
  - DRUG DOSE OMISSION [None]
  - MUSCLE SPASMS [None]
  - PNEUMONIA [None]
